FAERS Safety Report 4534229-9 (Version None)
Quarter: 2004Q4

REPORT INFORMATION
  Report Type: 
  Country: None (occurrence: None)
  Receive Date: 20041214
  Receipt Date: 20040826
  Transmission Date: 20050328
  Serious: No
  Sender: FDA-Public Use
  Company Number: 2004231878US

PATIENT
  Age: 56 Year
  Sex: Female
  Weight: 91.6 kg

DRUGS (3)
  1. BEXTRA [Suspect]
     Indication: MYALGIA
     Dosage: 10 MG ORAL
     Route: 048
     Dates: start: 20040825
  2. LISINOPRIL [Suspect]
     Indication: HYPERTENSION
     Dosage: 20 MG QD
  3. VITAMIN WITH ANTIOXIDANTS [Concomitant]

REACTIONS (2)
  - DIZZINESS [None]
  - DRUG INTERACTION [None]
